FAERS Safety Report 5061585-8 (Version None)
Quarter: 2006Q3

REPORT INFORMATION
  Report Type: 
  Country: None (occurrence: None)
  Receive Date: 20060721
  Receipt Date: 20060630
  Transmission Date: 20061208
  Serious: Yes (Hospitalization)
  Sender: FDA-Public Use
  Company Number: CIO06009423

PATIENT
  Age: 26 Year
  Sex: Female

DRUGS (2)
  1. NYQUIL [Suspect]
     Dosage: 360 ML, 1 ONLY FOR 1 DAY, ORAL
     Route: 048
     Dates: start: 20060610, end: 20060610
  2. PEDIACARE LONG-ACTING COUGH PLUS COLD (LIQUID) [Suspect]
     Dosage: 120 ML, 1 ONLY, ORAL
     Route: 048
     Dates: start: 20060610, end: 20060610

REACTIONS (3)
  - INCORRECT DOSE ADMINISTERED [None]
  - LOSS OF CONSCIOUSNESS [None]
  - SOMNOLENCE [None]
